FAERS Safety Report 24620389 (Version 1)
Quarter: 2024Q4

REPORT INFORMATION
  Report Type: Spontaneous
  Country: US (occurrence: US)
  Receive Date: 20241114
  Receipt Date: 20241114
  Transmission Date: 20250114
  Serious: No
  Sender: CURRAX PHARMACEUTICALS
  Company Number: CRAX2401389

PATIENT
  Age: 53 Year
  Sex: Female

DRUGS (4)
  1. CONTRAVE [Suspect]
     Active Substance: BUPROPION HYDROCHLORIDE\NALTREXONE HYDROCHLORIDE
     Indication: Product used for unknown indication
     Dosage: STRENGTH 8/90 MG, SHE TOOK ONE TABLET A DAY(LAST YEAR)
     Route: 065
  2. CONTRAVE [Suspect]
     Active Substance: BUPROPION HYDROCHLORIDE\NALTREXONE HYDROCHLORIDE
     Dosage: STRENGTH 8/90 MG, ONE TABLET THE FIRST WEEK (RESTARTED)
     Route: 065
     Dates: start: 202406, end: 2024
  3. CONTRAVE [Suspect]
     Active Substance: BUPROPION HYDROCHLORIDE\NALTREXONE HYDROCHLORIDE
     Dosage: STRENGTH 8/90 MG, ONE TABLET IN THE MORNING AND EVENING
     Route: 065
     Dates: start: 2024, end: 2024
  4. CONTRAVE [Suspect]
     Active Substance: BUPROPION HYDROCHLORIDE\NALTREXONE HYDROCHLORIDE
     Dosage: STRENGTH 8/90 MG, 2 MORNING, 1 EVENING (TAKING 3 TABLETS A DAY WEEK 3)
     Route: 065
     Dates: start: 2024

REACTIONS (2)
  - Insurance issue [Unknown]
  - Therapy interrupted [Unknown]
